FAERS Safety Report 6700863-0 (Version None)
Quarter: 2010Q2

REPORT INFORMATION
  Report Type: 
  Country: None (occurrence: None)
  Receive Date: 20100428
  Receipt Date: 20100421
  Transmission Date: 20101027
  Serious: Yes (Other)
  Sender: FDA-Public Use
  Company Number: JP-ELI_LILLY_AND_COMPANY-JP201004000005

PATIENT
  Age: 82 Year
  Sex: Female
  Weight: 41 kg

DRUGS (8)
  1. GEMZAR [Suspect]
     Indication: BLADDER CANCER
     Dosage: 1000 MG, OTHER
     Route: 042
     Dates: start: 20100121, end: 20100325
  2. CISPLATIN [Concomitant]
     Indication: BLADDER CANCER
     Dosage: 70 MG, OTHER
     Route: 042
     Dates: start: 20100122, end: 20100219
  3. MAGMITT [Concomitant]
     Route: 048
  4. PURSENNID [Concomitant]
     Route: 048
  5. MUCOSTA [Concomitant]
     Route: 048
  6. PARIET [Concomitant]
     Route: 048
  7. FERO-GRADUMET [Concomitant]
     Route: 048
  8. MENTAX [Concomitant]
     Route: 061

REACTIONS (3)
  - MUSCULAR WEAKNESS [None]
  - NEURALGIA [None]
  - OEDEMA PERIPHERAL [None]
